FAERS Safety Report 4833934-4 (Version None)
Quarter: 2005Q4

REPORT INFORMATION
  Report Type: 
  Country: None (occurrence: None)
  Receive Date: 20051119
  Receipt Date: 20051107
  Transmission Date: 20060501
  Serious: Yes (Death)
  Sender: FDA-Public Use
  Company Number: 2005-BP-19379RO

PATIENT
  Age: 39 Year
  Sex: 0

DRUGS (3)
  1. COCAINE (COCAINE) [Suspect]
  2. DIAZEPAM [Suspect]
  3. ETHANOL [Suspect]

REACTIONS (2)
  - COMPLETED SUICIDE [None]
  - MULTIPLE DRUG OVERDOSE INTENTIONAL [None]
